FAERS Safety Report 9432223 (Version 4)
Quarter: 2014Q2

REPORT INFORMATION
  Report Type: Report from Study
  Country: BR (occurrence: BR)
  Receive Date: 20130731
  Receipt Date: 20140603
  Transmission Date: 20141212
  Serious: Yes (Hospitalization, Other)
  Sender: FDA-Public Use
  Company Number: PHHY2013BR080452

PATIENT
  Sex: Female
  Weight: 50 kg

DRUGS (1)
  1. SANDOSTATIN LAR [Suspect]
     Indication: NEUROENDOCRINE TUMOUR
     Dosage: 30 MG, MONTHLY
     Route: 030

REACTIONS (7)
  - Gastrointestinal neoplasm [Recovering/Resolving]
  - Hepatic neoplasm [Unknown]
  - Pancreatic neoplasm [Unknown]
  - Memory impairment [Unknown]
  - Weight decreased [Recovering/Resolving]
  - Headache [Recovering/Resolving]
  - Itching scar [Not Recovered/Not Resolved]
